FAERS Safety Report 9776216 (Version 3)
Quarter: 2014Q1

REPORT INFORMATION
  Report Type: Spontaneous
  Country: JP (occurrence: JP)
  Receive Date: 20131220
  Receipt Date: 20140129
  Transmission Date: 20141002
  Serious: Yes (Hospitalization)
  Sender: FDA-Public Use
  Company Number: JP-TAKEDA-2013TJP003953

PATIENT
  Age: 62 Year
  Sex: Male

DRUGS (1)
  1. LIOVEL COMBINATION TABLETS LD [Suspect]
     Indication: DIABETES MELLITUS
     Dosage: 1 DF, QD
     Route: 048
     Dates: start: 201207

REACTIONS (1)
  - Vomiting [Recovering/Resolving]
